FAERS Safety Report 10145747 (Version 1)
Quarter: 2014Q2

REPORT INFORMATION
  Report Type: Report from Study
  Country: US (occurrence: US)
  Receive Date: 20140501
  Receipt Date: 20140501
  Transmission Date: 20141212
  Serious: No
  Sender: FDA-Public Use
  Company Number: US-ABBVIE-13P-163-1130512-00

PATIENT
  Sex: Female

DRUGS (2)
  1. CREON [Suspect]
     Indication: PANCREATIC OPERATION
     Dosage: 3 PILLS X 24000 USP PER MEAL
  2. INSULIN [Concomitant]
     Indication: TYPE 1 DIABETES MELLITUS

REACTIONS (2)
  - Underdose [Unknown]
  - Diarrhoea [Unknown]
